FAERS Safety Report 5262631-9 (Version None)
Quarter: 2007Q1

REPORT INFORMATION
  Report Type: 
  Country: None (occurrence: None)
  Receive Date: 20070307
  Receipt Date: 20070223
  Transmission Date: 20070707
  Serious: No
  Sender: FDA-Public Use
  Company Number: 2007-155003-NL

PATIENT
  Age: 51 Year
  Sex: Female

DRUGS (6)
  1. MIRTAZAPINE [Suspect]
     Dosage: 30 MG QD, ORAL
     Route: 048
     Dates: start: 20011122
  2. ESCITALOPRAM OXALATE [Concomitant]
  3. ALPRAZOLAM [Concomitant]
  4. ALVESCO / CICLESONIDE [Concomitant]
  5. TRETINOIN [Concomitant]
  6. SALBUTAMOL [Concomitant]

REACTIONS (2)
  - EXTRASYSTOLES [None]
  - FLUSHING [None]
